FAERS Safety Report 8850265 (Version 1)
Quarter: 2012Q4

REPORT INFORMATION
  Report Type: 
  Country: US (occurrence: US)
  Receive Date: 20121019
  Receipt Date: 20121019
  Transmission Date: 20130627
  Serious: Yes (Other)
  Sender: FDA-Public Use
  Company Number: US-ROCHE-789851

PATIENT
  Age: 44 Year
  Sex: Female
  Weight: 54.48 kg

DRUGS (3)
  1. ACCUTANE [Suspect]
     Indication: ACNE
     Route: 065
  2. ACCUTANE [Suspect]
     Route: 065
     Dates: start: 200111, end: 2001
  3. ORAL CONTRACEPTIVE NOS [Concomitant]

REACTIONS (4)
  - Colitis ulcerative [Unknown]
  - Emotional distress [Unknown]
  - Depression [Unknown]
  - Large intestine polyp [Unknown]
